FAERS Safety Report 6260906-8 (Version None)
Quarter: 2009Q3

REPORT INFORMATION
  Report Type: 
  Country: None (occurrence: None)
  Receive Date: 20090709
  Receipt Date: 20071121
  Transmission Date: 20100115
  Serious: Yes (Other)
  Sender: FDA-Public Use
  Company Number: US-ASTRAZENECA-2006UW11342

PATIENT
  Age: 42 Year
  Sex: Male
  Weight: 154.2 kg

DRUGS (19)
  1. SEROQUEL [Suspect]
     Indication: DEPRESSION
     Dosage: 25MG-400MG
     Route: 048
     Dates: start: 20000518
  2. SEROQUEL [Suspect]
     Indication: SCHIZOPHRENIA
     Dosage: 25MG-400MG
     Route: 048
     Dates: start: 20000518
  3. SEROQUEL [Suspect]
     Route: 048
     Dates: start: 20020805, end: 20021031
  4. SEROQUEL [Suspect]
     Route: 048
     Dates: start: 20020805, end: 20021031
  5. NEXIUM [Concomitant]
  6. ACTOS [Concomitant]
  7. BENZOTROPINE [Concomitant]
  8. ABILIFY [Concomitant]
  9. ZITHROMAX [Concomitant]
  10. ZYRTEC [Concomitant]
  11. EFFEXOR [Concomitant]
  12. KLONOPIN [Concomitant]
  13. TYLENOL (CAPLET) [Concomitant]
  14. RISPERDAL [Concomitant]
  15. METFORMIN HCL [Concomitant]
  16. AMITRIPTYLINE [Concomitant]
  17. GLIMEPIRIDE [Concomitant]
  18. NAPROXEN [Concomitant]
  19. CEFPROZIL [Concomitant]

REACTIONS (2)
  - DIABETES MELLITUS [None]
  - DIABETIC NEUROPATHY [None]
